FAERS Safety Report 7183554-4 (Version None)
Quarter: 2010Q4

REPORT INFORMATION
  Report Type: 
  Country: None (occurrence: None)
  Receive Date: 20101222
  Receipt Date: 20101214
  Transmission Date: 20110411
  Serious: Yes (Hospitalization, Other)
  Sender: FDA-Public Use
  Company Number: JP-GENZYME-FLUD-1000550

PATIENT
  Sex: Female
  Weight: 43 kg

DRUGS (36)
  1. FLUDARA [Suspect]
     Indication: APLASTIC ANAEMIA
     Dosage: UNK
     Dates: start: 20100314, end: 20100317
  2. THYMOGLOBULIN [Suspect]
     Indication: PREMEDICATION
     Dosage: 105 MG, ONCE
     Route: 042
     Dates: start: 20100312, end: 20100313
  3. MICAFUNGIN SODIUM [Concomitant]
     Indication: ANTIFUNGAL PROPHYLAXIS
     Dosage: UNK
     Dates: start: 20100312, end: 20100329
  4. LEVOFLOXACIN [Concomitant]
     Indication: ANTIBIOTIC PROPHYLAXIS
     Dosage: UNK
     Dates: start: 20100306, end: 20100422
  5. URSODEOXYCHOLIC ACID [Concomitant]
     Indication: PROPHYLAXIS
     Dosage: UNK
     Dates: start: 20100101, end: 20100620
  6. REBAMIPIDE [Concomitant]
     Indication: GASTRITIS PROPHYLAXIS
     Dosage: UNK
     Dates: start: 20100312
  7. MESNA [Concomitant]
     Indication: PROPHYLAXIS
     Dosage: UNK
     Dates: start: 20100314, end: 20100317
  8. GRANISETRON HYDROCHLORIDE [Concomitant]
     Indication: PROPHYLAXIS OF NAUSEA AND VOMITING
     Dosage: UNK
     Dates: start: 20100310, end: 20100317
  9. PREDNISOLONE [Concomitant]
     Indication: APLASTIC ANAEMIA
     Dosage: UNK
     Dates: start: 20100314, end: 20100317
  10. CYCLOPHOSPHAMIDE [Concomitant]
     Indication: APLASTIC ANAEMIA
     Dosage: UNK
     Dates: start: 20100314, end: 20100317
  11. ACYCLOVIR [Concomitant]
     Indication: ANTIVIRAL PROPHYLAXIS
     Dosage: UNK
     Dates: start: 20100312, end: 20100625
  12. ACYCLOVIR [Concomitant]
  13. TACROLIMUS [Concomitant]
     Indication: PROPHYLAXIS AGAINST GRAFT VERSUS HOST DISEASE
     Dosage: UNK
     Dates: start: 20100318
  14. METHOTREXATE [Concomitant]
     Indication: PROPHYLAXIS AGAINST GRAFT VERSUS HOST DISEASE
     Dosage: UNK
     Dates: start: 20100320, end: 20100330
  15. HYDROXYZINE HCL [Concomitant]
     Indication: PROPHYLAXIS OF NAUSEA AND VOMITING
     Dosage: UNK
     Dates: start: 20100316, end: 20100319
  16. DILTIAZEM HYDROCHLORIDE [Concomitant]
     Indication: HYPERTENSION
     Dosage: UNK
     Dates: start: 20100319, end: 20100322
  17. NICARDIPINE HYDROCHLORIDE [Concomitant]
     Indication: HYPERTENSION
     Dosage: UNK
     Dates: start: 20100322, end: 20100402
  18. AMLODIPINE BESYLATE [Concomitant]
     Indication: HYPERTENSION
     Dosage: UNK
     Dates: start: 20100330
  19. MAGNESIUM SULFATE [Concomitant]
     Indication: CONSTIPATION PROPHYLAXIS
     Dosage: UNK
     Dates: start: 20100322, end: 20100430
  20. INSULIN HUMAN [Concomitant]
     Indication: DIABETES MELLITUS
     Dosage: UNK
     Dates: start: 20100322, end: 20100406
  21. FILGRASTIM [Concomitant]
     Indication: APLASTIC ANAEMIA
     Dosage: UNK
     Dates: start: 20100326, end: 20100405
  22. CANDESARTAN CILEXETIL [Concomitant]
     Indication: HYPERTENSION
     Dosage: UNK
     Dates: start: 20100402, end: 20100415
  23. VOGLIBOSE [Concomitant]
     Indication: DIABETES MELLITUS
     Dosage: UNK
     Dates: start: 20090408
  24. RABEPRAZOLE SODIUM [Concomitant]
     Indication: PROPHYLAXIS AGAINST GASTROINTESTINAL ULCER
     Dosage: UNK
     Dates: start: 20100322
  25. PENTAMIDINE ISETHIONATE [Concomitant]
     Indication: ANTIFUNGAL PROPHYLAXIS
     Dosage: UNK
     Dates: start: 20100501, end: 20100501
  26. TRIMETHOPRIM + SULFAMETHOXAZOLE [Concomitant]
     Indication: ANTIFUNGAL PROPHYLAXIS
     Dosage: UNK
     Dates: start: 20100607
  27. RED BLOOD CELLS, CONCENTRATED [Concomitant]
     Indication: APLASTIC ANAEMIA
     Dosage: UNK
     Dates: start: 20090224, end: 20100405
  28. PLATELETS, CONCENTRATED [Concomitant]
     Indication: APLASTIC ANAEMIA
     Dosage: UNK
     Dates: start: 20090222, end: 20100414
  29. RANITIDINE HYDROCHLORIDE [Concomitant]
     Indication: VOMITING
     Dosage: UNK
     Dates: start: 20100312, end: 20100312
  30. ACETAMINOPHEN [Concomitant]
     Indication: PYREXIA
     Dosage: UNK
     Dates: start: 20100312, end: 20100421
  31. ACETAMINOPHEN [Concomitant]
     Indication: DYSPNOEA
  32. METHYLPREDNISOLONE SODIUM SUCCINATE [Concomitant]
     Indication: PYREXIA
  33. METHYLPREDNISOLONE SODIUM SUCCINATE [Concomitant]
     Indication: DYSPNOEA
  34. CHLORPHENIRAMINE MALEATE [Concomitant]
     Indication: PYREXIA
     Dosage: UNK
     Dates: start: 20100312, end: 20100312
  35. CHLORPHENIRAMINE MALEATE [Concomitant]
     Indication: DYSPNOEA
  36. CHLORPHENIRAMINE MALEATE [Concomitant]
     Indication: BACK PAIN

REACTIONS (17)
  - ACUTE GRAFT VERSUS HOST DISEASE IN SKIN [None]
  - ASPERGILLUS TEST POSITIVE [None]
  - BACK PAIN [None]
  - CANDIDA TEST POSITIVE [None]
  - CYTOMEGALOVIRUS TEST POSITIVE [None]
  - DIARRHOEA [None]
  - HEADACHE [None]
  - HYPERURICAEMIA [None]
  - HYPOKALAEMIA [None]
  - LIVER DISORDER [None]
  - NAUSEA [None]
  - PRURITUS [None]
  - PYREXIA [None]
  - RASH [None]
  - STOMATITIS [None]
  - URTICARIA [None]
  - VOMITING [None]
